FAERS Safety Report 6382244-5 (Version None)
Quarter: 2009Q3

REPORT INFORMATION
  Report Type: 
  Country: None (occurrence: None)
  Receive Date: 20090930
  Receipt Date: 20090917
  Transmission Date: 20100115
  Serious: Yes (Hospitalization)
  Sender: FDA-Public Use
  Company Number: US-ASTRAZENECA-2009SE09670

PATIENT
  Age: 24343 Day
  Sex: Male
  Weight: 120.2 kg

DRUGS (12)
  1. NEXIUM [Suspect]
     Indication: DYSPEPSIA
     Route: 065
     Dates: start: 20040101
  2. NEXIUM [Suspect]
     Indication: GASTROOESOPHAGEAL REFLUX DISEASE
     Route: 065
     Dates: start: 20040101
  3. TOPROL-XL [Concomitant]
  4. HYZAAR [Concomitant]
  5. NORVASC [Concomitant]
  6. HYDRALAZINE [Concomitant]
  7. ZOCOR [Concomitant]
  8. ASPIRIN [Concomitant]
  9. VITAMINS [Concomitant]
  10. METFORMIN HYDROCHLORIDE [Concomitant]
     Indication: DIABETES MELLITUS
  11. INSULIN [Concomitant]
     Indication: DIABETES MELLITUS
  12. PLAVIX [Concomitant]

REACTIONS (2)
  - DIABETES MELLITUS [None]
  - STENT PLACEMENT [None]
